FAERS Safety Report 14046825 (Version 1)
Quarter: 2017Q4

REPORT INFORMATION
  Report Type: Report from Study
  Country: IN (occurrence: IN)
  Receive Date: 20171005
  Receipt Date: 20171005
  Transmission Date: 20180321
  Serious: Yes (Other)
  Sender: FDA-Public Use
  Company Number: IN-ROCHE-2003464

PATIENT
  Age: 71 Year
  Sex: Male

DRUGS (2)
  1. ALTEPLASE. [Suspect]
     Active Substance: ALTEPLASE
     Indication: ISCHAEMIC STROKE
     Route: 042
  2. WARFARIN [Concomitant]
     Active Substance: WARFARIN
     Indication: HEMIPARESIS

REACTIONS (1)
  - Haemorrhagic transformation stroke [Recovered/Resolved]
